FAERS Safety Report 6240675-8 (Version None)
Quarter: 2009Q2

REPORT INFORMATION
  Report Type: 
  Country: None (occurrence: None)
  Receive Date: 20090623
  Receipt Date: 20090106
  Transmission Date: 20091009
  Serious: No
  Sender: FDA-Public Use
  Company Number: US-ASTRAZENECA-2009UW00382

PATIENT
  Age: 78 Year
  Sex: Female
  Weight: 83.9 kg

DRUGS (3)
  1. PULMICORT RESPULES [Suspect]
     Indication: CHRONIC OBSTRUCTIVE PULMONARY DISEASE
     Dosage: A MG/2  ML
     Route: 055
     Dates: start: 20090105
  2. XOPENEX [Concomitant]
  3. PREDNISONE TAB [Concomitant]

REACTIONS (2)
  - INSOMNIA [None]
  - IRRITABILITY [None]
